FAERS Safety Report 7200295-5 (Version None)
Quarter: 2010Q4

REPORT INFORMATION
  Report Type: 
  Country: None (occurrence: None)
  Receive Date: 20101228
  Receipt Date: 20101217
  Transmission Date: 20110411
  Serious: Yes (Hospitalization)
  Sender: FDA-Public Use
  Company Number: B0689842A

PATIENT
  Sex: Female

DRUGS (3)
  1. CLAMOXYL [Suspect]
     Indication: DEVICE RELATED INFECTION
     Route: 042
     Dates: start: 20100927, end: 20100930
  2. DALACINE [Suspect]
     Indication: DEVICE RELATED INFECTION
     Route: 042
     Dates: start: 20100930, end: 20101011
  3. RIFADIN [Suspect]
     Indication: DEVICE RELATED INFECTION
     Route: 042
     Dates: start: 20100930, end: 20101009

REACTIONS (7)
  - CHOLESTASIS [None]
  - CONDITION AGGRAVATED [None]
  - EOSINOPHILIA [None]
  - PRURITUS [None]
  - PURPURA [None]
  - RASH ERYTHEMATOUS [None]
  - RASH MACULO-PAPULAR [None]
